FAERS Safety Report 8548444-0 (Version None)
Quarter: 2012Q3

REPORT INFORMATION
  Report Type: 
  Country: None (occurrence: None)
  Receive Date: 20120719
  Receipt Date: 20120719
  Transmission Date: 20120928
  Serious: Yes (Other)
  Sender: FDA-Public Use
  Company Number: None

PATIENT
  Sex: Male
  Weight: 83.9154 kg

DRUGS (1)
  1. OXYCODONE HCL [Suspect]
     Indication: BACK DISORDER
     Dosage: 30 MG 6 PER DAY
     Dates: start: 20110401, end: 20120403

REACTIONS (6)
  - DYSKINESIA [None]
  - HAEMATOSPERMIA [None]
  - ERECTILE DYSFUNCTION [None]
  - DYSPEPSIA [None]
  - MUSCLE CONTRACTURE [None]
  - PENILE VEIN THROMBOSIS [None]
